FAERS Safety Report 20113954 (Version 1)
Quarter: 2021Q4

REPORT INFORMATION
  Report Type: Other
  Country: US (occurrence: None)
  Receive Date: 20211125
  Receipt Date: 20211125
  Transmission Date: 20220303
  Serious: Yes (Other)
  Sender: FDA-Public Use
  Company Number: US-ROCHE-2962159

PATIENT
  Sex: Female

DRUGS (2)
  1. ACTEMRA [Suspect]
     Active Substance: TOCILIZUMAB
     Indication: Giant cell arteritis
     Dosage: 0.9 ML PFS
     Route: 058
  2. ACTEMRA [Suspect]
     Active Substance: TOCILIZUMAB

REACTIONS (1)
  - Blindness unilateral [Unknown]
